FAERS Safety Report 4887843-5 (Version None)
Quarter: 2006Q1

REPORT INFORMATION
  Report Type: 
  Country: None (occurrence: None)
  Receive Date: 20060123
  Receipt Date: 20050308
  Transmission Date: 20060701
  Serious: Yes (Hospitalization)
  Sender: FDA-Public Use
  Company Number: US-MERCK-0503USA01387

PATIENT
  Age: 63 Year
  Sex: Male
  Weight: 75 kg

DRUGS (4)
  1. VIOXX [Suspect]
     Indication: OSTEOARTHRITIS
     Route: 048
     Dates: start: 20020429, end: 20020609
  2. TOPROL-XL [Concomitant]
     Route: 065
     Dates: start: 20010705
  3. SYNTHROID [Concomitant]
     Route: 065
     Dates: start: 20020517
  4. ORPHENADRINE [Concomitant]
     Route: 065

REACTIONS (7)
  - ACUTE CORONARY SYNDROME [None]
  - ANXIETY [None]
  - ARTERIOSCLEROSIS CORONARY ARTERY [None]
  - DEPRESSION [None]
  - HYPONATRAEMIA [None]
  - LIVER DISORDER [None]
  - SLEEP DISORDER [None]
